FAERS Safety Report 7518128-6 (Version None)
Quarter: 2011Q2

REPORT INFORMATION
  Report Type: 
  Country: None (occurrence: None)
  Receive Date: 20110531
  Receipt Date: 20110531
  Transmission Date: 20111010
  Serious: Yes (Hospitalization)
  Sender: FDA-Public Use
  Company Number: None

PATIENT
  Age: 29 Year
  Sex: Female
  Weight: 50.8 kg

DRUGS (2)
  1. CYCLOPHOSPHAMIDE [Suspect]
  2. ADRIAMYCIN PFS [Suspect]

REACTIONS (1)
  - FEBRILE NEUTROPENIA [None]
